FAERS Safety Report 8767060 (Version 1)
Quarter: 2012Q4

REPORT INFORMATION
  Report Type: 
  Country: CL (occurrence: CL)
  Receive Date: 20120904
  Receipt Date: 20120904
  Transmission Date: 20130627
  Serious: Yes (Death, Other)
  Sender: FDA-Public Use
  Company Number: PHHY2012CL018175

PATIENT
  Age: 44 Year
  Sex: Female
  Weight: 50.4 kg

DRUGS (5)
  1. GLIVEC [Suspect]
     Indication: ACUTE LYMPHOCYTIC LEUKAEMIA
     Dosage: 600 mg, UNK
     Dates: start: 201107, end: 20120109
  2. METHOTREXATE [Suspect]
     Dosage: 150 mg, UNK
  3. VINCRISTINE [Suspect]
     Dosage: 2 mg, UNK
  4. CYTARABINE [Suspect]
     Dosage: 3 g, UNK
  5. DEXAMETHASONE [Suspect]
     Dosage: 30 mg, UNK

REACTIONS (4)
  - Death [Fatal]
  - Septic shock [Unknown]
  - Pneumonia [Unknown]
  - Neutropenia [Unknown]
